FAERS Safety Report 23668001 (Version 3)
Quarter: 2024Q3

REPORT INFORMATION
  Report Type: Report from Study
  Country: US (occurrence: US)
  Receive Date: 20240325
  Receipt Date: 20240703
  Transmission Date: 20241016
  Serious: Yes (Hospitalization, Other)
  Sender: RECORDATI
  Company Number: US-ORPHANEU-2024001988

PATIENT

DRUGS (38)
  1. CARBAGLU [Suspect]
     Active Substance: CARGLUMIC ACID
     Indication: Propionic acidaemia
     Dosage: UNK
     Route: 048
  2. CARBAGLU [Suspect]
     Active Substance: CARGLUMIC ACID
     Dosage: 650 MILLIGRAM, QID
     Route: 048
     Dates: start: 20240308, end: 20240313
  3. CARBAGLU [Suspect]
     Active Substance: CARGLUMIC ACID
     Dosage: DOSE INCREASED (UNKNOWN)
     Route: 048
     Dates: start: 20240314, end: 2024
  4. CARBAGLU [Suspect]
     Active Substance: CARGLUMIC ACID
     Dosage: 3 TABLETS (600 MG TOTAL) BY MOUTH 2 TIMES DAILY AND 3.5 TABLETS (700 MG TOTAL) 2 TIMES DAILY, QID
     Route: 048
     Dates: start: 2024, end: 2024
  5. CARBAGLU [Suspect]
     Active Substance: CARGLUMIC ACID
     Dosage: 700 MG, QID
     Route: 048
     Dates: start: 20240618
  6. KEPPRA [Suspect]
     Active Substance: LEVETIRACETAM
     Indication: Product used for unknown indication
     Dosage: 300 MILLIGRAM (3 ML)), Q12H, (100 MG/ML SOLUTION)
     Route: 048
     Dates: start: 20240102, end: 20240110
  7. KEPPRA [Suspect]
     Active Substance: LEVETIRACETAM
     Dosage: 300 MILLIGRAM (3 ML)), Q12H, (100 MG/ML SOLUTION)
     Route: 048
     Dates: start: 20240117
  8. ONFI [Suspect]
     Active Substance: CLOBAZAM
     Indication: Product used for unknown indication
     Dosage: 5 MG (2 ML), BID (2.5 MG/ML SUSPENSION)
     Route: 048
     Dates: start: 20240425, end: 2024
  9. ONFI [Suspect]
     Active Substance: CLOBAZAM
     Dosage: 5 MG (2 ML), BID (2.5 MG/ML SUSPENSION)
     Route: 048
     Dates: start: 20240610, end: 202406
  10. DIASTAT [Concomitant]
     Active Substance: DIAZEPAM
     Indication: Seizure
     Dosage: 7.5 MILLIGRAM, PRN, 10 MG/2 ML GEL
     Route: 054
     Dates: start: 20221209
  11. HYDROCORTISONE [Concomitant]
     Active Substance: HYDROCORTISONE\HYDROCORTISONE ACETATE
     Indication: Pruritus
     Dosage: 1PERCENT OINTMENT, APPLY TOPICALLY 2 TIMES DAILY
     Route: 061
     Dates: start: 20220512
  12. PROPIMEX-1 [Concomitant]
     Indication: Propionic acidaemia
     Dosage: QM (PER MONTH), 15-480 G-KCAL/100 G POWDER (1 CASE OF PROPIMEX 1 PER MONTH)
     Dates: start: 20220922
  13. PROPIMEX-1 [Concomitant]
     Dosage: 5-480 G-KCAL/100 G POWDER, AS NEEDED DAILY)
     Dates: start: 20240103
  14. PREVACID SOLUTAB [Concomitant]
     Active Substance: LANSOPRAZOLE
     Indication: Product used for unknown indication
     Dosage: 7.5 MILLIGRAM DAILY (0.5 TABLETS) (15 MG DISINTEGRATING TABLET)
     Route: 048
     Dates: start: 20231116
  15. CARNITOR [Concomitant]
     Active Substance: LEVOCARNITINE
     Indication: Product used for unknown indication
     Dosage: 600 MILLIGRAM, TID ( 6 ML), (100 MG/ML SOLUTION )
     Route: 048
     Dates: start: 20240125
  16. COENZYME Q10 [Concomitant]
     Active Substance: DIETARY SUPPLEMENT\UBIDECARENONE
     Indication: Product used for unknown indication
     Dosage: 100 MILLIGRAM (1ML) DAILY, (100 MG/ML LIQUID)
     Route: 048
     Dates: start: 20220903
  17. MINERAL OIL [Concomitant]
     Active Substance: MINERAL OIL
     Indication: Product used for unknown indication
     Dosage: PRN (AS NEEDED), SOLUTION
     Route: 061
     Dates: start: 20221202
  18. AQUAPHOR [Concomitant]
     Active Substance: PETROLATUM
     Indication: Product used for unknown indication
     Dosage: PRN (AS NEEDED), 41 PERCENT OINTMENT
     Route: 061
     Dates: start: 20220615
  19. MIRALAX [Concomitant]
     Active Substance: POLYETHYLENE GLYCOL 3350
     Indication: Product used for unknown indication
     Dosage: 8.5 GRAMS DAILY (17 GRAM POWDER)
     Route: 048
  20. MIRALAX [Concomitant]
     Active Substance: POLYETHYLENE GLYCOL 3350
     Dosage: 8 GRAMS DAILY (17 GRAM POWDER)
     Route: 048
  21. VITAMIN B6 [Concomitant]
     Active Substance: PYRIDOXINE HYDROCHLORIDE
     Indication: Product used for unknown indication
     Dosage: 50 MILLIGRAM (2 ML), (25 MG/ML SUSPENSION)
     Route: 048
     Dates: start: 20220929
  22. TRIPLE PASTE [Concomitant]
     Indication: Rash
     Dosage: PRN (AS NEEDED)
     Route: 061
     Dates: start: 20220615
  23. ILEX [Concomitant]
     Indication: Rash
     Dosage: PRN (AS NEEDED)
     Route: 061
     Dates: start: 20221202
  24. ZINC OXIDE [Concomitant]
     Active Substance: ZINC OXIDE
     Indication: Rash
     Dosage: 20 PERCENT OINTMENT , PRN
     Route: 061
     Dates: start: 20230317, end: 20240620
  25. Remedy Phytoplex Protectant Z Guard [Concomitant]
     Indication: Product used for unknown indication
     Dosage: Q4H, AS NEEDED (17-57 PERCENT)
     Route: 061
     Dates: start: 20221202
  26. PROPIMEX-2 [Concomitant]
     Indication: Propionic acidaemia
     Dosage: 40 GRAM/DAY (30-410 GRAM-KCAL POWDER), AS NEEDED
     Dates: start: 20240103
  27. TRANSDERM SCOP [Concomitant]
     Active Substance: SCOPOLAMINE
     Indication: Nausea
     Dosage: 1 MG/ 3 DAYS (PLACE 1 PATCH ONTO THE SKIN AS NEEDED)
     Route: 062
     Dates: start: 20240323
  28. SODIUM CITRATE [Concomitant]
     Active Substance: SODIUM CITRATE
     Indication: Product used for unknown indication
     Dosage: UNK
  29. PRILOSEC [Concomitant]
     Active Substance: OMEPRAZOLE MAGNESIUM
     Indication: Product used for unknown indication
     Dosage: 10 MG, UNK (SUSPENSION)
  30. MORPHINE SULFATE [Concomitant]
     Active Substance: MORPHINE SULFATE
     Indication: Product used for unknown indication
     Dosage: UNK
  31. LOVENOX [Concomitant]
     Active Substance: ENOXAPARIN SODIUM
     Indication: Product used for unknown indication
  32. VERSED [Concomitant]
     Active Substance: MIDAZOLAM HYDROCHLORIDE
     Indication: Product used for unknown indication
     Dosage: 4.7 MG, UNK (0.2 MG/KG, INTRANSAL)
     Route: 045
  33. ALBUTEROL [Concomitant]
     Active Substance: ALBUTEROL
     Indication: Product used for unknown indication
     Dosage: 2.5MG/3ML (NEBULIZED SOLUTION), Q6H
     Dates: start: 20240529
  34. ALBUTEROL [Concomitant]
     Active Substance: ALBUTEROL
     Dosage: 2.5 MG/3 ML (NEBULIZED SOLUTION), 2 TIMES DAILY
  35. BUFFERED LIDOCAINE [Concomitant]
     Indication: Product used for unknown indication
     Dosage: 1PERCENT SYRINGE 0.2 ML (JTIP), PRN
  36. MELATONIN [Concomitant]
     Active Substance: MELATONIN
     Indication: Product used for unknown indication
     Dosage: 1 MG, QD (BEDTIME)
     Route: 048
  37. SODIUM CHLORIDE [Concomitant]
     Active Substance: SODIUM CHLORIDE
     Indication: Product used for unknown indication
     Dosage: (0.9%), PRN (SYRINGE)
     Route: 042
  38. KENALOG [Concomitant]
     Active Substance: TRIAMCINOLONE ACETONIDE
     Indication: Product used for unknown indication
     Dosage: 0.5 PERCENT CREAM, APPLY TOPICALLY 3 TIMES DAILY FOR 14 DAYS
     Route: 061
     Dates: start: 20240515, end: 20240620

REACTIONS (10)
  - Hyperammonaemic crisis [Recovering/Resolving]
  - Metapneumovirus infection [Recovering/Resolving]
  - Hyperammonaemic crisis [Recovered/Resolved]
  - Vomiting [Recovering/Resolving]
  - Diarrhoea [Unknown]
  - Vomiting [Recovering/Resolving]
  - Vomiting [Recovered/Resolved]
  - Hepatic enzyme increased [Not Recovered/Not Resolved]
  - Blood glucose increased [Not Recovered/Not Resolved]
  - Product dose omission issue [Recovered/Resolved]

NARRATIVE: CASE EVENT DATE: 20240101
